FAERS Safety Report 4780421-8 (Version None)
Quarter: 2005Q3

REPORT INFORMATION
  Report Type: 
  Country: None (occurrence: None)
  Receive Date: 20050927
  Receipt Date: 20050922
  Transmission Date: 20060218
  Serious: Yes (Death, Other)
  Sender: FDA-Public Use
  Company Number: 2005UW14081

PATIENT
  Sex: Female

DRUGS (2)
  1. SEROQUEL [Suspect]
  2. PAXIL [Suspect]
     Route: 048

REACTIONS (5)
  - COMPLETED SUICIDE [None]
  - CONFUSIONAL STATE [None]
  - DEPERSONALISATION [None]
  - MANIA [None]
  - OBSESSIVE-COMPULSIVE DISORDER [None]
